FAERS Safety Report 10198751 (Version 2)
Quarter: 2014Q2

REPORT INFORMATION
  Report Type: Spontaneous
  Country: US (occurrence: US)
  Receive Date: 20140527
  Receipt Date: 20140606
  Transmission Date: 20141212
  Serious: No
  Sender: FDA-Public Use
  Company Number: US-BAXTER-2014BAX025192

PATIENT
  Sex: Male
  Weight: 74.91 kg

DRUGS (3)
  1. GAMMAGARD S/D [Suspect]
     Indication: HYPER IGM SYNDROME
     Route: 042
     Dates: end: 201305
  2. GAMMAGARD S/D [Suspect]
     Indication: X-LINKED CHROMOSOMAL DISORDER
     Route: 058
     Dates: start: 201305
  3. GAMMAGARD S/D [Suspect]
     Indication: OFF LABEL USE
     Route: 042

REACTIONS (1)
  - Drug level below therapeutic [Not Recovered/Not Resolved]
